FAERS Safety Report 16321590 (Version 1)
Quarter: 2019Q2

REPORT INFORMATION
  Report Type: Report from Study
  Country: CA (occurrence: CA)
  Receive Date: 20190516
  Receipt Date: 20190516
  Transmission Date: 20190711
  Serious: Yes (Other)
  Sender: FDA-Public Use
  Company Number: CA-ELI_LILLY_AND_COMPANY-CA201905004358

PATIENT
  Age: 64 Year
  Sex: Female
  Weight: 123 kg

DRUGS (2)
  1. IXEKIZUMAB [Suspect]
     Active Substance: IXEKIZUMAB
     Indication: PSORIASIS
     Dosage: 80 MG, Q12W
     Route: 065
     Dates: start: 20181126, end: 20190213
  2. TREMFYA [Concomitant]
     Active Substance: GUSELKUMAB
     Dosage: UNK, UNKNOWN
     Route: 065
     Dates: start: 20190304

REACTIONS (1)
  - Cellulitis [Recovered/Resolved]

NARRATIVE: CASE EVENT DATE: 20190420
